FAERS Safety Report 22220889 (Version 1)
Quarter: 2023Q2

REPORT INFORMATION
  Report Type: Spontaneous
  Country: US (occurrence: US)
  Receive Date: 20230418
  Receipt Date: 20230418
  Transmission Date: 20230722
  Serious: Yes (Hospitalization)
  Sender: FDA-Public Use
  Company Number: US-BMS-IMIDS-REMS_SI-10286550

PATIENT
  Sex: Male

DRUGS (1)
  1. LENALIDOMIDE [Suspect]
     Active Substance: LENALIDOMIDE
     Indication: Product used for unknown indication
     Dosage: DISPENSE DATES: 11/03/2022, 11/25/2022, 01/19/2023, 02/17/2023 AND  04/10/2023.
     Route: 048
     Dates: start: 202211

REACTIONS (1)
  - Hospitalisation [Unknown]
